FAERS Safety Report 14932502 (Version 2)
Quarter: 2018Q2

REPORT INFORMATION
  Report Type: Report from Study
  Country: GB (occurrence: GB)
  Receive Date: 20180524
  Receipt Date: 20180612
  Transmission Date: 20180711
  Serious: Yes (Hospitalization, Other)
  Sender: FDA-Public Use
  Company Number: GB-ROCHE-2127161

PATIENT
  Sex: Female

DRUGS (1)
  1. RITUXIMAB. [Suspect]
     Active Substance: RITUXIMAB
     Indication: NEUROMYELITIS OPTICA SPECTRUM DISORDER
     Route: 042

REACTIONS (6)
  - Off label use [Unknown]
  - Intentional product use issue [Unknown]
  - Bronchiectasis [Unknown]
  - Hypogammaglobulinaemia [Unknown]
  - Otitis media [Unknown]
  - Pneumonia mycoplasmal [Recovered/Resolved]
